FAERS Safety Report 9543382 (Version 2)
Quarter: 2014Q1

REPORT INFORMATION
  Report Type: Spontaneous
  Country: US (occurrence: None)
  Receive Date: 20130524
  Receipt Date: 20130724
  Transmission Date: 20141002
  Serious: No
  Sender: FDA-Public Use
  Company Number: PHEH2013US002780

PATIENT
  Age: 41 Year
  Sex: Male
  Weight: 74.8 kg

DRUGS (1)
  1. GILENYA [Suspect]
     Indication: MULTIPLE SCLEROSIS
     Route: 048
     Dates: start: 20101217

REACTIONS (3)
  - Constipation [None]
  - Dyspepsia [None]
  - Rash pruritic [None]
